FAERS Safety Report 7765687-4 (Version None)
Quarter: 2011Q3

REPORT INFORMATION
  Report Type: 
  Country: None (occurrence: None)
  Receive Date: 20110921
  Receipt Date: 20110908
  Transmission Date: 20111222
  Serious: Yes (Other)
  Sender: FDA-Public Use
  Company Number: US-ELI_LILLY_AND_COMPANY-US201109005388

PATIENT
  Sex: Male

DRUGS (2)
  1. GEMZAR [Suspect]
     Indication: LUNG NEOPLASM MALIGNANT
     Dosage: UNK
     Dates: start: 20110830
  2. CISPLATIN [Concomitant]

REACTIONS (8)
  - URINE OUTPUT DECREASED [None]
  - RASH [None]
  - FATIGUE [None]
  - ABNORMAL WEIGHT GAIN [None]
  - COUGH [None]
  - OEDEMA [None]
  - CONSTIPATION [None]
  - DYSPNOEA [None]
